FAERS Safety Report 7041873-6 (Version None)
Quarter: 2010Q4

REPORT INFORMATION
  Report Type: 
  Country: None (occurrence: None)
  Receive Date: 20101013
  Receipt Date: 20101006
  Transmission Date: 20110411
  Serious: Yes (Disabling)
  Sender: FDA-Public Use
  Company Number: DE-WYE-G06651010

PATIENT
  Sex: Male
  Weight: 92 kg

DRUGS (4)
  1. TREVILOR RETARD [Suspect]
     Indication: SOCIAL PHOBIA
     Route: 048
     Dates: start: 20060918, end: 20080101
  2. TREVILOR RETARD [Suspect]
     Indication: DEPRESSION
     Route: 048
     Dates: start: 20080101, end: 20090901
  3. TREVILOR RETARD [Suspect]
     Indication: ANXIETY
  4. METHYLPHENIDATE [Concomitant]

REACTIONS (9)
  - AMNESIA [None]
  - BRAIN INJURY [None]
  - DEMENTIA [None]
  - DISTURBANCE IN ATTENTION [None]
  - DRUG WITHDRAWAL SYNDROME [None]
  - EMOTIONAL DISORDER [None]
  - LIBIDO DECREASED [None]
  - MANIA [None]
  - MIGRAINE [None]
